FAERS Safety Report 5606421-3 (Version None)
Quarter: 2008Q1

REPORT INFORMATION
  Report Type: 
  Country: None (occurrence: None)
  Receive Date: 20080129
  Receipt Date: 20080122
  Transmission Date: 20080703
  Serious: Yes (Other)
  Sender: FDA-Public Use
  Company Number: A0698180A

PATIENT
  Age: 36 Year
  Sex: Male
  Weight: 113.6 kg

DRUGS (5)
  1. BEXXAR [Suspect]
     Indication: LYMPHOMA
     Dosage: 450MG PER DAY
     Route: 042
     Dates: start: 20071128, end: 20071128
  2. BEXXAR [Suspect]
     Indication: LYMPHOMA
     Dosage: 35MG PER DAY
     Route: 042
     Dates: start: 20071128, end: 20071128
  3. ALCOHOL [Suspect]
     Route: 048
     Dates: start: 20071127, end: 20071127
  4. DIPHENHYDRAMINE HCL [Concomitant]
  5. APAP TAB [Concomitant]

REACTIONS (16)
  - ANAPHYLACTIC REACTION [None]
  - BRADYCARDIA [None]
  - CAPILLARY DISORDER [None]
  - CHEST DISCOMFORT [None]
  - DYSPNOEA [None]
  - ERYTHEMA [None]
  - HYPERHIDROSIS [None]
  - HYPOTENSION [None]
  - NEUTROPENIA [None]
  - SHOCK [None]
  - SKIN DISCOLOURATION [None]
  - THROAT IRRITATION [None]
  - THROAT TIGHTNESS [None]
  - THROMBOCYTOPENIA [None]
  - TREMOR [None]
  - WHITE BLOOD CELL COUNT DECREASED [None]
